FAERS Safety Report 23456905 (Version 2)
Quarter: 2024Q1

REPORT INFORMATION
  Report Type: Spontaneous
  Country: CA (occurrence: CA)
  Receive Date: 20240130
  Receipt Date: 20240321
  Transmission Date: 20240410
  Serious: Yes (Hospitalization, Other)
  Sender: FDA-Public Use
  Company Number: CA-PFIZER INC-202201095194

PATIENT
  Age: 37 Year
  Sex: Female

DRUGS (2)
  1. ABRILADA [Suspect]
     Active Substance: ADALIMUMAB-AFZB
     Indication: Crohn^s disease
     Dosage: 40 MG, WEEK 0: 160MG, WEEK 2: 80MG, WEEK 4: 40MG EVERY 2 WEEKS
     Route: 058
     Dates: start: 20220518
  2. ABRILADA [Suspect]
     Active Substance: ADALIMUMAB-AFZB
     Dosage: 40 MG, WEEK 0: 160MG, WEEK 2: 80MG, WEEK 4: 40MG EVERY 2 WEEKS
     Route: 058
     Dates: start: 2022

REACTIONS (5)
  - COVID-19 [Not Recovered/Not Resolved]
  - Gallbladder disorder [Unknown]
  - Stress [Unknown]
  - Abdominal pain upper [Not Recovered/Not Resolved]
  - Condition aggravated [Unknown]

NARRATIVE: CASE EVENT DATE: 20220801
